FAERS Safety Report 16253803 (Version 1)
Quarter: 2019Q2

REPORT INFORMATION
  Report Type: Spontaneous
  Country: CA (occurrence: CA)
  Receive Date: 20190430
  Receipt Date: 20190430
  Transmission Date: 20190711
  Serious: Yes (Death, Hospitalization, Other)
  Sender: FDA-Public Use
  Company Number: CA-AMGEN-CANSP2019065810

PATIENT
  Sex: Male

DRUGS (2)
  1. PANITUMUMAB [Suspect]
     Active Substance: PANITUMUMAB
     Indication: SQUAMOUS CELL CARCINOMA OF HEAD AND NECK
     Dosage: 15.3 MILLIGRAM/KILOGRAM, (FIRST DOSE ON DAY -7 OF RADIATION THERAPY)
     Route: 042
  2. PANITUMUMAB [Suspect]
     Active Substance: PANITUMUMAB
     Dosage: 9 MILLIGRAM/KILOGRAM, Q3WK (2ND AND 3RD DOSE ON DAYS 15 AND 36 OF RADIATION THERAPY)
     Route: 042

REACTIONS (4)
  - Pulmonary embolism [Unknown]
  - Death [Fatal]
  - Off label use [Unknown]
  - Cardiac arrest [Unknown]
